FAERS Safety Report 5934572-2 (Version None)
Quarter: 2008Q4

REPORT INFORMATION
  Report Type: 
  Country: None (occurrence: None)
  Receive Date: 20081027
  Receipt Date: 20081016
  Transmission Date: 20090506
  Serious: Yes (Hospitalization, Other)
  Sender: FDA-Public Use
  Company Number: CHPA2008US17666

PATIENT
  Age: 2 Year
  Sex: Male
  Weight: 15.4 kg

DRUGS (2)
  1. TRIAMINIC NIGHT TIME COLD + COUGH (NCH) (DIPHENHYDRAMINE, PHENYLEPHRIN [Suspect]
     Indication: NASOPHARYNGITIS
     Dosage: 0.75 TSP, PRN, ORAL
     Route: 048
  2. TRIAMINIC DAY TIME COLD + COUGH (NCH) (DEXTROMETHORPHAN HYDROBROMIDE, [Suspect]
     Indication: NASOPHARYNGITIS
     Dosage: 0.75 TSP, PRN, ORAL
     Route: 048

REACTIONS (1)
  - CONVULSION [None]
